FAERS Safety Report 25032308 (Version 1)
Quarter: 2025Q1

REPORT INFORMATION
  Report Type: Spontaneous
  Country: CN (occurrence: CN)
  Receive Date: 20250303
  Receipt Date: 20250303
  Transmission Date: 20250409
  Serious: Yes (Hospitalization, Other)
  Sender: BAXTER
  Company Number: None

PATIENT
  Age: 64 Year
  Sex: Female
  Weight: 71.2 kg

DRUGS (5)
  1. GLYCERIN\LECITHIN\TRIGLYCERIDES,UNSPECIFIED LENGTH\SOYBEAN OIL [Suspect]
     Active Substance: GLYCERIN\LECITHIN\TRIGLYCERIDES,UNSPECIFIED LENGTH\SOYBEAN OIL
     Indication: Gastric cancer
     Route: 041
     Dates: start: 20250211, end: 20250214
  2. AMINO ACIDS, SOURCE UNSPECIFIED [Suspect]
     Active Substance: AMINO ACIDS, SOURCE UNSPECIFIED
     Indication: Gastric cancer
     Route: 041
     Dates: start: 20250211, end: 20250214
  3. SODIUM CHLORIDE [Suspect]
     Active Substance: SODIUM CHLORIDE
     Indication: Gastric cancer
     Route: 041
     Dates: start: 20250211, end: 20250214
  4. DEXTROSE [Suspect]
     Active Substance: DEXTROSE MONOHYDRATE
     Indication: Gastric cancer
     Route: 041
     Dates: start: 20250207, end: 20250207
  5. DEXTROSE [Suspect]
     Active Substance: DEXTROSE MONOHYDRATE
     Route: 041
     Dates: start: 20250211, end: 20250214

REACTIONS (1)
  - Liver injury [Recovering/Resolving]

NARRATIVE: CASE EVENT DATE: 20250213
